FAERS Safety Report 14064318 (Version 1)
Quarter: 2017Q4

REPORT INFORMATION
  Report Type: Spontaneous
  Country: US (occurrence: US)
  Receive Date: 20171009
  Receipt Date: 20171009
  Transmission Date: 20180321
  Serious: Yes (Other)
  Sender: FDA-Public Use
  Company Number: US-PFIZER INC-2017430423

PATIENT
  Age: 57 Year
  Sex: Female
  Weight: 72.57 kg

DRUGS (1)
  1. VENLAFAXINE HCL [Suspect]
     Active Substance: VENLAFAXINE HYDROCHLORIDE
     Dosage: 150 MG, ALTERNATE DAY

REACTIONS (3)
  - Drug dependence [Unknown]
  - Intentional product misuse [Unknown]
  - Vertigo [Unknown]
